FAERS Safety Report 5498855-5 (Version None)
Quarter: 2007Q4

REPORT INFORMATION
  Report Type: 
  Country: None (occurrence: None)
  Receive Date: 20071026
  Receipt Date: 20070726
  Transmission Date: 20080405
  Serious: No
  Sender: FDA-Public Use
  Company Number: A0666573A

PATIENT
  Age: 54 Year
  Sex: Female

DRUGS (3)
  1. ADVAIR DISKUS 100/50 [Suspect]
     Indication: BRONCHITIS
     Dosage: 1MG TWICE PER DAY
     Route: 055
     Dates: start: 20070725
  2. LEVAQUIN [Concomitant]
  3. INHALER [Concomitant]

REACTIONS (1)
  - MUSCULAR WEAKNESS [None]
